FAERS Safety Report 24251833 (Version 3)
Quarter: 2024Q4

REPORT INFORMATION
  Report Type: Spontaneous
  Country: US (occurrence: US)
  Receive Date: 20240827
  Receipt Date: 20241104
  Transmission Date: 20250114
  Serious: Yes (Other)
  Sender: CSL BEHRING
  Company Number: US-BEH-2024177464

PATIENT
  Age: 18 Year
  Sex: Male

DRUGS (5)
  1. HUMATE-P [Suspect]
     Active Substance: HUMAN COAGULATION FACTOR VIII/VON WILLEBRAND FACTOR COMPLEX
     Indication: Von Willebrand^s disease
     Dosage: 6987 IU, BIW
     Route: 042
     Dates: start: 201207
  2. HUMATE-P [Suspect]
     Active Substance: HUMAN COAGULATION FACTOR VIII/VON WILLEBRAND FACTOR COMPLEX
     Indication: Prophylaxis
     Dosage: 10525 IU, QW
     Route: 042
     Dates: start: 201207
  3. HUMATE-P [Suspect]
     Active Substance: HUMAN COAGULATION FACTOR VIII/VON WILLEBRAND FACTOR COMPLEX
     Dosage: 7267 IU PRN
     Route: 042
     Dates: start: 201207
  4. COVID-19 vaccine [Concomitant]
     Dosage: UNK
     Dates: start: 20241013
  5. SALINE [Concomitant]
     Active Substance: SODIUM CHLORIDE

REACTIONS (7)
  - Haemarthrosis [Unknown]
  - Fall [Unknown]
  - Epistaxis [Recovered/Resolved]
  - Epistaxis [Recovered/Resolved]
  - Epistaxis [Recovered/Resolved]
  - Epistaxis [Recovered/Resolved]
  - Epistaxis [Recovered/Resolved]

NARRATIVE: CASE EVENT DATE: 20240726
